FAERS Safety Report 10144838 (Version 1)
Quarter: 2014Q2

REPORT INFORMATION
  Report Type: Spontaneous
  Country: US (occurrence: US)
  Receive Date: 20140430
  Receipt Date: 20140430
  Transmission Date: 20141212
  Serious: No
  Sender: FDA-Public Use
  Company Number: US-SANOFI-AVENTIS-2013SA051333

PATIENT
  Age: 48 Year
  Sex: Female

DRUGS (12)
  1. DEMEROL [Suspect]
  2. MIGRANOL ^CONAL^ [Concomitant]
  3. MILNACIPRAN [Concomitant]
  4. PROVIGIL [Concomitant]
  5. SEROQUEL [Concomitant]
  6. LYRICA [Concomitant]
  7. CELEBREX [Concomitant]
  8. FLUTICASONE [Concomitant]
  9. ADVAIR [Concomitant]
  10. METHADONE [Concomitant]
  11. XANAX [Concomitant]
  12. OXYCONTIN [Concomitant]

REACTIONS (1)
  - Drug hypersensitivity [Unknown]
